FAERS Safety Report 26169739 (Version 1)
Quarter: 2025Q4

REPORT INFORMATION
  Report Type: Spontaneous
  Country: EU (occurrence: EU)
  Receive Date: 20251217
  Receipt Date: 20251217
  Transmission Date: 20260117
  Serious: Yes (Other)
  Sender: SAMSUNG BIOEPIS
  Company Number: EU-SAMSUNG BIOEPIS-SB-2025-41765

PATIENT

DRUGS (2)
  1. ECULIZUMAB [Suspect]
     Active Substance: ECULIZUMAB
     Indication: Myasthenia gravis
     Dosage: THE MAINTENANCE PHASE CONSISTED OF 1200 MG INTRAVENOUS INFUSION AT THE FIFTH WEEK, FOLLOWED BY 1200
     Route: 042
  2. ECULIZUMAB [Suspect]
     Active Substance: ECULIZUMAB
     Dosage: INDUCTION PHASE CONSISTED OF FOUR WEEKLY AND CONSECUTIVE IV DOSES OF 900 MG;
     Route: 042

REACTIONS (2)
  - Pneumonia [Unknown]
  - Off label use [Unknown]
